FAERS Safety Report 20955034 (Version 1)
Quarter: 2022Q2

REPORT INFORMATION
  Report Type: Spontaneous
  Country: GB (occurrence: GB)
  Receive Date: 20220614
  Receipt Date: 20220614
  Transmission Date: 20220720
  Serious: Yes (Other)
  Sender: FDA-Public Use
  Company Number: None

PATIENT
  Age: 67 Year
  Sex: Female
  Weight: 80 kg

DRUGS (12)
  1. SOLIFENACIN [Suspect]
     Active Substance: SOLIFENACIN
     Indication: Ill-defined disorder
     Dosage: UNK TAKEN ONCE DAILY
     Route: 065
     Dates: start: 20220120
  2. SOLIFENACIN [Suspect]
     Active Substance: SOLIFENACIN
     Dosage: UNK
     Route: 065
     Dates: start: 20220420
  3. CALCIUM CARBONATE\CHOLECALCIFEROL [Concomitant]
     Active Substance: CALCIUM CARBONATE\CHOLECALCIFEROL
     Indication: Ill-defined disorder
     Dosage: TAKE ONE DAILY
     Route: 065
     Dates: start: 20210608
  4. DOCUSATE SODIUM [Concomitant]
     Active Substance: DOCUSATE SODIUM
     Indication: Ill-defined disorder
     Dosage: TAKE ONE 4 TIMES/DAY
     Route: 065
     Dates: start: 20210608
  5. FERROUS SULFATE [Concomitant]
     Active Substance: FERROUS SULFATE
     Indication: Ill-defined disorder
     Dosage: 1 DAILY
     Route: 065
     Dates: start: 20210608
  6. FLUCONAZOLE [Concomitant]
     Active Substance: FLUCONAZOLE
     Indication: Ill-defined disorder
     Dosage: TAKE ONE DAILY FOR SEVEN DAYS
     Route: 065
     Dates: start: 20220420
  7. IBUPROFEN [Concomitant]
     Active Substance: IBUPROFEN
     Indication: Ill-defined disorder
     Dosage: TAKE ONE 3 TIMES/DAY AFTER FOOD AS ADVICED
     Route: 065
     Dates: start: 20210608
  8. LANSOPRAZOLE [Concomitant]
     Active Substance: LANSOPRAZOLE
     Indication: Ill-defined disorder
     Dosage: TAKE ONE ONCE DAILY
     Route: 065
     Dates: start: 20210608
  9. POLYETHYLENE GLYCOL 3350\POTASSIUM CHLORIDE\SODIUM BICARBONATE\SODIUM [Concomitant]
     Active Substance: POLYETHYLENE GLYCOL 3350\POTASSIUM CHLORIDE\SODIUM BICARBONATE\SODIUM CHLORIDE
     Indication: Ill-defined disorder
     Dosage: USE ONE SACHET ONCE DAILY WHEN NECESSARY FOR CO...
     Route: 065
     Dates: start: 20210608
  10. NITROFURANTOIN [Concomitant]
     Active Substance: NITROFURANTOIN
     Indication: Ill-defined disorder
     Dosage: TAKE ONE TABLET AT NIGHT FOR THREE MONTHS FROM ...
     Route: 065
     Dates: start: 20210608, end: 20220303
  11. PREGABALIN [Concomitant]
     Active Substance: PREGABALIN
     Indication: Ill-defined disorder
     Dosage: TAKE ONE TWO TIMES DAILY
     Route: 065
     Dates: start: 20210608, end: 20220303
  12. ACETAMINOPHEN\CODEINE PHOSPHATE [Concomitant]
     Active Substance: ACETAMINOPHEN\CODEINE PHOSPHATE
     Indication: Ill-defined disorder
     Dosage: TAKE TWO CAPSULES FOUR TIMES DAILY WHEN NECESSARY
     Route: 065
     Dates: start: 20210608

REACTIONS (1)
  - Constipation [Recovered/Resolved]

NARRATIVE: CASE EVENT DATE: 20220420
